FAERS Safety Report 15510816 (Version 1)
Quarter: 2018Q4

REPORT INFORMATION
  Report Type: Spontaneous
  Country: US (occurrence: US)
  Receive Date: 20181016
  Receipt Date: 20181016
  Transmission Date: 20190205
  Serious: No
  Sender: FDA-Public Use
  Company Number: US-AMGEN-USASP2018029475

PATIENT
  Age: 70 Year
  Sex: Female

DRUGS (6)
  1. NEULASTA [Suspect]
     Active Substance: PEGFILGRASTIM
     Indication: PRODUCT USED FOR UNKNOWN INDICATION
     Dosage: UNK
     Route: 065
  2. CYCLOPHOSPHAMIDE. [Concomitant]
     Active Substance: CYCLOPHOSPHAMIDE
     Indication: LYMPHOMA
     Dosage: UNK, Q3WK (DAY 1)
  3. RITUXIMAB. [Concomitant]
     Active Substance: RITUXIMAB
     Indication: LYMPHOMA
     Dosage: UNK, Q3WK (DAY 1)
  4. PREDNISOLONE. [Concomitant]
     Active Substance: PREDNISOLONE
     Indication: LYMPHOMA
     Dosage: UNK, Q3WK (DAY 1)
  5. ONCOVIN [Concomitant]
     Active Substance: VINCRISTINE SULFATE
     Indication: LYMPHOMA
     Dosage: UNK, Q3WK (DAY 1)
  6. HYDROXYDAUNORUBICIN [Concomitant]
     Active Substance: DOXORUBICIN
     Indication: LYMPHOMA
     Dosage: UNK, Q3WK (DAY 1)

REACTIONS (3)
  - Fall [Unknown]
  - Unintentional medical device removal [Unknown]
  - Dizziness [Unknown]

NARRATIVE: CASE EVENT DATE: 201802
